FAERS Safety Report 7237433-4 (Version None)
Quarter: 2011Q1

REPORT INFORMATION
  Report Type: 
  Country: None (occurrence: None)
  Receive Date: 20110121
  Receipt Date: 20110113
  Transmission Date: 20110831
  Serious: Yes (Hospitalization)
  Sender: FDA-Public Use
  Company Number: US-SANOFI-AVENTIS-2011SA003260

PATIENT
  Age: 83 Year
  Sex: Male

DRUGS (6)
  1. JEVTANA KIT [Suspect]
     Indication: PROSTATE CANCER
     Route: 041
  2. COUMADIN [Concomitant]
     Indication: PULMONARY EMBOLISM
  3. PREDNISONE [Concomitant]
     Indication: PREMEDICATION
  4. COMPAZINE [Concomitant]
  5. LIDOCAINE HYDROCHLORIDE IN PLASTIC CONTAINER [Concomitant]
     Dosage: SWISH AND SWALLOW
     Dates: start: 20101206
  6. DIPHENHYDRAMINE HYDROCHLORIDE [Concomitant]
     Dosage: SWISH AND SWALLOW
     Dates: start: 20101206

REACTIONS (3)
  - PHARYNGEAL OEDEMA [None]
  - DYSPHAGIA [None]
  - COUGH [None]
